FAERS Safety Report 20427756 (Version 2)
Quarter: 2022Q1

REPORT INFORMATION
  Report Type: Spontaneous
  Country: US (occurrence: US)
  Receive Date: 20220204
  Receipt Date: 20220303
  Transmission Date: 20220423
  Serious: No
  Sender: FDA-Public Use
  Company Number: US-Blueprint Medicines Corporation-SP-US-2022-000247

PATIENT
  Age: 49 Year
  Sex: Female

DRUGS (2)
  1. AYVAKIT [Suspect]
     Active Substance: AVAPRITINIB
     Indication: Systemic mastocytosis
     Route: 048
     Dates: start: 20211207
  2. HISTAMINE [Concomitant]
     Active Substance: HISTAMINE
     Indication: Product used for unknown indication
     Route: 065

REACTIONS (4)
  - Nausea [Unknown]
  - COVID-19 [Recovering/Resolving]
  - Headache [Recovered/Resolved]
  - Rash macular [Recovering/Resolving]
